FAERS Safety Report 25749809 (Version 1)
Quarter: 2025Q3

REPORT INFORMATION
  Report Type: Spontaneous
  Country: US (occurrence: US)
  Receive Date: 20250902
  Receipt Date: 20250902
  Transmission Date: 20251021
  Serious: No
  Sender: ABBVIE
  Company Number: US-ABBVIE-6438668

PATIENT
  Age: 80 Year
  Sex: Male

DRUGS (2)
  1. VYALEV [Suspect]
     Active Substance: FOSCARBIDOPA\FOSLEVODOPA
     Indication: Parkinson^s disease
     Route: 058
     Dates: start: 20250827
  2. MELATONIN [Concomitant]
     Active Substance: MELATONIN
     Indication: Sleep disorder therapy

REACTIONS (2)
  - Somnolence [Unknown]
  - Insomnia [Unknown]

NARRATIVE: CASE EVENT DATE: 20250827
